FAERS Safety Report 8802225 (Version 2)
Quarter: 2015Q1

REPORT INFORMATION
  Report Type: Report from Study
  Country: US (occurrence: US)
  Receive Date: 20120921
  Receipt Date: 20150318
  Transmission Date: 20150721
  Serious: Yes (Death)
  Sender: FDA-Public Use
  Company Number: US-ROCHE-1124292

PATIENT
  Age: 60 Year
  Sex: Female
  Weight: 70.2 kg

DRUGS (21)
  1. AVASTIN [Suspect]
     Active Substance: BEVACIZUMAB
     Indication: COLON CANCER
     Route: 042
  2. OXYCODONE [Concomitant]
     Active Substance: OXYCODONE
     Route: 048
  3. MAGNESIUM SULFATE. [Concomitant]
     Active Substance: MAGNESIUM SULFATE
     Route: 065
  4. LEVAQUIN [Concomitant]
     Active Substance: LEVOFLOXACIN
     Route: 048
  5. OXALIPLATIN. [Concomitant]
     Active Substance: OXALIPLATIN
     Route: 042
  6. LEUCOVORIN [Concomitant]
     Active Substance: LEUCOVORIN
     Route: 042
  7. FLUOROURACIL. [Concomitant]
     Active Substance: FLUOROURACIL
     Route: 042
  8. PALONOSETRON [Concomitant]
     Active Substance: PALONOSETRON
     Route: 042
  9. DEXAMETHASONE. [Concomitant]
     Active Substance: DEXAMETHASONE
     Route: 048
  10. CALCIUM GLUCONATE. [Concomitant]
     Active Substance: CALCIUM GLUCONATE
     Route: 065
  11. PROCHLORPERAZINE. [Concomitant]
     Active Substance: PROCHLORPERAZINE
     Indication: NAUSEA
     Route: 048
  12. LEUCOVORIN [Concomitant]
     Active Substance: LEUCOVORIN
     Route: 042
  13. OXALIPLATIN. [Concomitant]
     Active Substance: OXALIPLATIN
     Route: 042
  14. FLUOROURACIL. [Concomitant]
     Active Substance: FLUOROURACIL
     Route: 042
  15. PROCHLORPERAZINE. [Concomitant]
     Active Substance: PROCHLORPERAZINE
     Indication: VOMITING
  16. ONDANSETRON [Concomitant]
     Active Substance: ONDANSETRON
     Route: 065
  17. OXYCODONE [Concomitant]
     Active Substance: OXYCODONE
     Route: 048
  18. CIMETIDINE [Concomitant]
     Active Substance: CIMETIDINE
     Route: 065
  19. AVASTIN [Suspect]
     Active Substance: BEVACIZUMAB
     Route: 042
  20. AVASTIN [Suspect]
     Active Substance: BEVACIZUMAB
     Route: 042
  21. FLUOROURACIL. [Concomitant]
     Active Substance: FLUOROURACIL
     Route: 042

REACTIONS (4)
  - Abdominal pain [Unknown]
  - Death [Fatal]
  - Temperature intolerance [Unknown]
  - Pyrexia [Unknown]

NARRATIVE: CASE EVENT DATE: 20070802
